FAERS Safety Report 9306325 (Version 1)
Quarter: 2012Q4

REPORT INFORMATION
  Report Type: Spontaneous
  Country: US (occurrence: None)
  Receive Date: 20121220
  Receipt Date: 20121220
  Transmission Date: 20130627
  Serious: Yes (Death, Hospitalization)
  Sender: FDA-Public Use
  Company Number: 2010-442

PATIENT
  Age: 49 Year
  Sex: Male

DRUGS (3)
  1. PRIALT (ZICONOTIDE) INTRATHECAL INFUSION [Suspect]
     Route: 037
     Dates: start: 20101211, end: 20101218
  2. FENTANYL [Suspect]
     Route: 037
     Dates: start: 20101210
  3. LIORESAL (BACLOFEN) [Suspect]
     Route: 037
     Dates: start: 20101210

REACTIONS (3)
  - Pulmonary embolism [None]
  - Myocardial infarction [None]
  - Arthritis infective [None]
